FAERS Safety Report 24988263 (Version 1)
Quarter: 2025Q1

REPORT INFORMATION
  Report Type: Spontaneous
  Country: US (occurrence: US)
  Receive Date: 20250220
  Receipt Date: 20250220
  Transmission Date: 20250409
  Serious: No
  Sender: INGENUS
  Company Number: US-INGENUS PHARMACEUTICALS, LLC-2024INF000072

PATIENT

DRUGS (1)
  1. DORZOLAMIDE HYDROCHLORIDE AND TIMOLOL MALEATE [Suspect]
     Active Substance: DORZOLAMIDE HYDROCHLORIDE\TIMOLOL MALEATE
     Indication: Product used for unknown indication
     Route: 047

REACTIONS (4)
  - Visual impairment [Unknown]
  - Product packaging quantity issue [Unknown]
  - Product physical consistency issue [Unknown]
  - Product use complaint [Unknown]
